FAERS Safety Report 16258938 (Version 1)
Quarter: 2019Q2

REPORT INFORMATION
  Report Type: Spontaneous
  Country: US (occurrence: US)
  Receive Date: 20190326
  Receipt Date: 20190326
  Transmission Date: 20190711
  Serious: No
  Sender: FDA-Public Use
  Company Number: None

PATIENT
  Age: 56 Year
  Sex: Male

DRUGS (1)
  1. PROCHLORPERAZINE. [Suspect]
     Active Substance: PROCHLORPERAZINE
     Indication: SURGERY
     Route: 042
     Dates: start: 20181001, end: 20181004

REACTIONS (1)
  - Angioedema [None]

NARRATIVE: CASE EVENT DATE: 20181014
